FAERS Safety Report 7238872-8 (Version None)
Quarter: 2011Q1

REPORT INFORMATION
  Report Type: 
  Country: None (occurrence: None)
  Receive Date: 20110121
  Receipt Date: 20110112
  Transmission Date: 20110831
  Serious: Yes (Hospitalization, Other)
  Sender: FDA-Public Use
  Company Number: PHHO2011DE00968

PATIENT
  Sex: Female

DRUGS (4)
  1. URBASON [Suspect]
     Indication: RENAL TRANSPLANT
     Dosage: 4 MG, QD
     Route: 048
     Dates: start: 20101115
  2. SANDIMMUNE [Suspect]
     Dosage: 75 MG, BID
     Route: 048
     Dates: start: 20101207, end: 20101207
  3. CERTICAN [Suspect]
     Indication: RENAL TRANSPLANT
     Dosage: 1 MG, BID
     Route: 048
     Dates: start: 20100422, end: 20101207
  4. SANDIMMUNE [Suspect]
     Indication: RENAL TRANSPLANT
     Dosage: 90 MG, BID
     Route: 048
     Dates: start: 20100901, end: 20101206

REACTIONS (7)
  - RHABDOMYOLYSIS [None]
  - ESCHERICHIA INFECTION [None]
  - HYPOVOLAEMIA [None]
  - RENAL FAILURE ACUTE [None]
  - METABOLIC ACIDOSIS [None]
  - UROSEPSIS [None]
  - PYREXIA [None]
